FAERS Safety Report 5668978-6 (Version None)
Quarter: 2008Q1

REPORT INFORMATION
  Report Type: 
  Country: None (occurrence: None)
  Receive Date: 20080317
  Receipt Date: 20080312
  Transmission Date: 20080703
  Serious: Yes (Death, Life-Threatening, Hospitalization)
  Sender: FDA-Public Use
  Company Number: HU-BRISTOL-MYERS SQUIBB COMPANY-13798889

PATIENT
  Age: 67 Year
  Sex: Male

DRUGS (11)
  1. CISPLATIN [Suspect]
     Indication: METASTATIC GASTRIC CANCER
     Dosage: CYCLE 1 ON 20/FEB/2007-NI.
     Route: 041
     Dates: start: 20070320, end: 20070320
  2. S-1 [Suspect]
     Indication: METASTATIC GASTRIC CANCER
     Dosage: CYCLE 1 ON 02/FEB/2007-NI.
     Route: 048
     Dates: start: 20070320, end: 20070405
  3. SIMVASTIN [Concomitant]
     Indication: ISCHAEMIC HEART DISEASE PROPHYLAXIS
     Route: 048
     Dates: start: 19920101
  4. LANSOPRAZOLE [Concomitant]
     Indication: DYSPEPSIA
     Route: 048
     Dates: start: 20070101
  5. FUROSEMIDE [Concomitant]
     Indication: HYPERTENSION
     Route: 048
     Dates: start: 19900101
  6. KALIUM [Concomitant]
     Indication: HYPERTENSION
     Route: 048
     Dates: start: 19900101
  7. QUAMATEL [Concomitant]
     Indication: DYSPEPSIA
     Route: 048
     Dates: start: 19900101
  8. RENITEC [Concomitant]
     Indication: HYPERTENSION
     Dosage: 1 DOSAGE FORM=1/2 TABLET.
     Route: 048
     Dates: start: 19900101
  9. CARVEDILOL [Concomitant]
     Indication: HYPERTENSION
     Route: 048
     Dates: start: 19900101
  10. DIAPHYLLIN [Concomitant]
     Indication: HYPERTENSION
     Route: 048
     Dates: start: 19900101
  11. SYNCUMAR [Concomitant]
     Indication: ISCHAEMIC HEART DISEASE PROPHYLAXIS
     Dosage: 1 DOSAGE FORM=1 TABLET.
     Route: 048
     Dates: start: 19920101

REACTIONS (7)
  - ACUTE LEFT VENTRICULAR FAILURE [None]
  - CARDIAC FAILURE [None]
  - GASTRIC HAEMORRHAGE [None]
  - MALIGNANT NEOPLASM PROGRESSION [None]
  - NEUTROPENIA [None]
  - STOMATITIS [None]
  - THROMBOCYTOPENIA [None]
